FAERS Safety Report 9187725 (Version 2)
Quarter: 2013Q2

REPORT INFORMATION
  Report Type: Report from Study
  Country: GB (occurrence: GB)
  Receive Date: 20130325
  Receipt Date: 20130606
  Transmission Date: 20140414
  Serious: Yes (Hospitalization)
  Sender: FDA-Public Use
  Company Number: PHFR2013GB001872

PATIENT
  Age: 28 Year
  Sex: Male
  Weight: 72 kg

DRUGS (7)
  1. ACZ885 [Suspect]
     Indication: CRYOPYRIN ASSOCIATED PERIODIC SYNDROME
     Dosage: 300 MG, UNK
     Route: 058
     Dates: start: 200806
  2. ACZ885 [Suspect]
     Indication: MUCKLE-WELLS SYNDROME
  3. PREDNISOLONE [Concomitant]
     Indication: CHRONIC SINUSITIS
     Dosage: 20 MG, QD
     Dates: start: 20120624
  4. CLARITHROMYCIN [Concomitant]
     Indication: CHRONIC SINUSITIS
     Dosage: 250 MG, BID
     Dates: start: 20120624
  5. SINUS RINSE [Concomitant]
     Indication: CHRONIC SINUSITIS
     Dosage: UNK
     Dates: start: 20120624
  6. FLIXONASE [Concomitant]
     Indication: CHRONIC SINUSITIS
     Dosage: UNK
     Dates: start: 20120703
  7. AMITRIPTYLINE [Concomitant]
     Indication: HEADACHE
     Dosage: 20 MG, UNK
     Route: 048
     Dates: start: 201201

REACTIONS (2)
  - Chronic sinusitis [Recovered/Resolved]
  - Nasal septum deviation [Recovered/Resolved]
